FAERS Safety Report 12508149 (Version 4)
Quarter: 2017Q1

REPORT INFORMATION
  Report Type: Spontaneous
  Country: US (occurrence: US)
  Receive Date: 20160629
  Receipt Date: 20170208
  Transmission Date: 20170428
  Serious: Yes (Hospitalization, Other)
  Sender: FDA-Public Use
  Company Number: US-PFIZER INC-2016318374

PATIENT
  Age: 67 Year
  Sex: Female
  Weight: 61 kg

DRUGS (4)
  1. LEVOXYL [Suspect]
     Active Substance: LEVOTHYROXINE SODIUM
     Indication: THYROID HORMONE REPLACEMENT THERAPY
     Dosage: 75 UG, 1X/DAY
     Route: 048
     Dates: start: 200110
  2. LEVOXYL [Suspect]
     Active Substance: LEVOTHYROXINE SODIUM
     Dosage: UNK
  3. LEVOXYL [Suspect]
     Active Substance: LEVOTHYROXINE SODIUM
     Dosage: UNK
     Dates: start: 201606
  4. LEVOXYL [Suspect]
     Active Substance: LEVOTHYROXINE SODIUM
     Dosage: UNK

REACTIONS (12)
  - Malaise [Recovering/Resolving]
  - Blood thyroid stimulating hormone increased [Unknown]
  - Prescribed overdose [Recovering/Resolving]
  - Psychomotor hyperactivity [Recovering/Resolving]
  - Irritability [Recovering/Resolving]
  - Nervousness [Recovering/Resolving]
  - Thyroxine free increased [Unknown]
  - Frequent bowel movements [Recovering/Resolving]
  - Heart rate increased [Recovering/Resolving]
  - Temperature intolerance [Recovering/Resolving]
  - Anxiety [Recovering/Resolving]
  - Insomnia [Recovering/Resolving]

NARRATIVE: CASE EVENT DATE: 20160415
